FAERS Safety Report 4490838-7 (Version None)
Quarter: 2004Q4

REPORT INFORMATION
  Report Type: 
  Country: None (occurrence: None)
  Receive Date: 20041027
  Receipt Date: 20041014
  Transmission Date: 20050328
  Serious: Yes (Hospitalization)
  Sender: FDA-Public Use
  Company Number: JP-2004-031879

PATIENT
  Age: 43 Year
  Sex: Female

DRUGS (3)
  1. BETAFERON (INTERFERON BETA-1B) INJECTION, 250UG [Suspect]
     Indication: MULTIPLE SCLEROSIS
     Dosage: 8 MIU, EVERY 2D, SUBCUTANEOUS
     Route: 058
     Dates: start: 20010329, end: 20030804
  2. PREDONINE [Concomitant]
  3. SOLU-MEDROL [Concomitant]

REACTIONS (4)
  - CHROMATURIA [None]
  - HEPATIC FUNCTION ABNORMAL [None]
  - MUSCULAR WEAKNESS [None]
  - OCULAR ICTERUS [None]
